FAERS Safety Report 22290058 (Version 1)
Quarter: 2023Q2

REPORT INFORMATION
  Report Type: Spontaneous
  Country: CA (occurrence: None)
  Receive Date: 20230505
  Receipt Date: 20230505
  Transmission Date: 20230721
  Serious: Yes (Other)
  Sender: FDA-Public Use
  Company Number: 2023A100154

PATIENT
  Sex: Male

DRUGS (4)
  1. BRILINTA [Suspect]
     Active Substance: TICAGRELOR
     Route: 048
  2. LIPITOR [Concomitant]
     Active Substance: ATORVASTATIN CALCIUM
  3. RAMIPRIL [Concomitant]
     Active Substance: RAMIPRIL
  4. ASPIRIN [Concomitant]
     Active Substance: ASPIRIN

REACTIONS (5)
  - Weight decreased [Unknown]
  - Diarrhoea [Recovered/Resolved]
  - Dyspnoea [Unknown]
  - Nasopharyngitis [Recovered/Resolved]
  - Drug interaction [Unknown]
